FAERS Safety Report 15857383 (Version 1)
Quarter: 2019Q1

REPORT INFORMATION
  Report Type: Spontaneous
  Country: US (occurrence: US)
  Receive Date: 20190122
  Receipt Date: 20190122
  Transmission Date: 20190417
  Serious: No
  Sender: FDA-Public Use
  Company Number: None

PATIENT
  Age: 86 Year
  Sex: Male
  Weight: 99 kg

DRUGS (6)
  1. CAPECITABINE. [Suspect]
     Active Substance: CAPECITABINE
     Indication: RECTOSIGMOID CANCER
     Route: 048
     Dates: start: 20150420
  2. GLYBURIDE. [Concomitant]
     Active Substance: GLYBURIDE
  3. HCTZ [Concomitant]
     Active Substance: HYDROCHLOROTHIAZIDE
  4. DOCUSATE [Concomitant]
     Active Substance: DOCUSATE
  5. OXALIPLATIN. [Concomitant]
     Active Substance: OXALIPLATIN
  6. METFORMIN [Concomitant]
     Active Substance: METFORMIN HYDROCHLORIDE

REACTIONS (1)
  - Nausea [None]
